FAERS Safety Report 9644496 (Version 2)
Quarter: 2013Q4

REPORT INFORMATION
  Report Type: Spontaneous
  Country: BR (occurrence: BR)
  Receive Date: 20131025
  Receipt Date: 20131025
  Transmission Date: 20140711
  Serious: Yes (Death, Hospitalization)
  Sender: FDA-Public Use
  Company Number: BR-ACCORD-020043

PATIENT
  Age: 39 Year
  Sex: Male

DRUGS (1)
  1. GEMCITABINE [Suspect]
     Indication: UNDIFFERENTIATED NASOPHARYNGEAL CARCINOMA
     Dosage: ON DAY 1, DAY 8, AND DAY?15, EACH 28 DAYS WAS PRESCRIBED

REACTIONS (3)
  - Shock [Fatal]
  - Thrombotic microangiopathy [Unknown]
  - Off label use [Unknown]
